FAERS Safety Report 8416554-4 (Version None)
Quarter: 2012Q2

REPORT INFORMATION
  Report Type: 
  Country: None (occurrence: None)
  Receive Date: 20120606
  Receipt Date: 20120531
  Transmission Date: 20120825
  Serious: Yes (Other)
  Sender: FDA-Public Use
  Company Number: IT-VIIV HEALTHCARE LIMITED-B0806240A

PATIENT
  Sex: Female

DRUGS (7)
  1. COLECALCIFEROL [Concomitant]
  2. VIREAD [Suspect]
     Indication: HIV INFECTION
     Dosage: 300MG PER DAY
     Route: 048
     Dates: start: 20030304, end: 20120127
  3. EPIVIR [Suspect]
     Indication: HIV INFECTION
     Dosage: 300MG PER DAY
     Route: 048
     Dates: start: 20020403, end: 20120127
  4. REYATAZ [Suspect]
     Indication: HIV INFECTION
     Dosage: 300MG PER DAY
     Route: 048
     Dates: start: 20090409, end: 20120127
  5. ESCITALOPRAM [Concomitant]
  6. LORAZEPAM [Concomitant]
  7. LEVOPRAID [Concomitant]

REACTIONS (1)
  - RENAL FUNCTION TEST ABNORMAL [None]
